FAERS Safety Report 8017604-X (Version None)
Quarter: 2012Q1

REPORT INFORMATION
  Report Type: 
  Country: None (occurrence: None)
  Receive Date: 20120103
  Receipt Date: 20111221
  Transmission Date: 20120608
  Serious: Yes (Hospitalization)
  Sender: FDA-Public Use
  Company Number: FR-BAYER-2011-121572

PATIENT
  Age: 42 Year
  Sex: Male
  Weight: 79 kg

DRUGS (1)
  1. HELIXATE [Suspect]
     Indication: RHINOPLASTY
     Dosage: 3000 IU, UNK
     Route: 042
     Dates: start: 20111027, end: 20111122

REACTIONS (4)
  - HAEMATOMA [None]
  - MUSCLE HAEMORRHAGE [None]
  - FACTOR VIII INHIBITION [None]
  - SUBCUTANEOUS HAEMATOMA [None]
